FAERS Safety Report 24102990 (Version 1)
Quarter: 2024Q3

REPORT INFORMATION
  Report Type: Spontaneous
  Country: GB (occurrence: GB)
  Receive Date: 20240717
  Receipt Date: 20240717
  Transmission Date: 20241017
  Serious: Yes (Hospitalization, Other)
  Sender: TEVA
  Company Number: None

PATIENT
  Age: 72 Year
  Sex: Female
  Weight: 65 kg

DRUGS (1)
  1. INDAPAMIDE [Suspect]
     Active Substance: INDAPAMIDE
     Indication: Hypertension
     Dosage: 2.5MG, BATCH NUMBER: RETURNED TO PHARMACY, DURATION: 27 DAYS
     Route: 065
     Dates: start: 20240529, end: 20240624

REACTIONS (3)
  - Hypertension [Unknown]
  - Palpitations [Recovered/Resolved with Sequelae]
  - Heart rate increased [Unknown]

NARRATIVE: CASE EVENT DATE: 20240625
